FAERS Safety Report 5237766-7 (Version None)
Quarter: 2007Q1

REPORT INFORMATION
  Report Type: 
  Country: None (occurrence: None)
  Receive Date: 20070214
  Receipt Date: 20070212
  Transmission Date: 20070707
  Serious: Yes (Other)
  Sender: FDA-Public Use
  Company Number: ES-GLAXOSMITHKLINE-B0456185A

PATIENT
  Age: 22 Year
  Sex: Female

DRUGS (3)
  1. LAMICTAL [Suspect]
     Indication: BIPOLAR II DISORDER
     Route: 048
     Dates: start: 20070104
  2. LITHIUM CARBONATE [Concomitant]
     Indication: BIPOLAR II DISORDER
     Dates: start: 20040201
  3. QUETIAPINE FUMARATE [Concomitant]
     Indication: BIPOLAR II DISORDER
     Dates: start: 20060901

REACTIONS (1)
  - COORDINATION ABNORMAL [None]
